FAERS Safety Report 7652749-5 (Version None)
Quarter: 2011Q3

REPORT INFORMATION
  Report Type: 
  Country: None (occurrence: None)
  Receive Date: 20110803
  Receipt Date: 20110722
  Transmission Date: 20111222
  Serious: Yes (Hospitalization)
  Sender: FDA-Public Use
  Company Number: KR-JNJFOC-20110708544

PATIENT
  Age: 49 Year
  Sex: Male
  Weight: 56 kg

DRUGS (3)
  1. HUMALOG [Concomitant]
     Indication: DIABETES MELLITUS
     Dosage: MIX 25
     Route: 058
     Dates: start: 20110329
  2. REMICADE [Suspect]
     Indication: COLITIS ULCERATIVE
     Route: 042
     Dates: start: 20110202
  3. FEROBA YOU SR [Concomitant]
     Indication: PROPHYLAXIS
     Route: 048
     Dates: start: 20110208

REACTIONS (1)
  - CYTOMEGALOVIRUS INFECTION [None]
